FAERS Safety Report 19601831 (Version 1)
Quarter: 2021Q3

REPORT INFORMATION
  Report Type: Spontaneous
  Country: DE (occurrence: DE)
  Receive Date: 20210723
  Receipt Date: 20210723
  Transmission Date: 20211014
  Serious: Yes (Hospitalization)
  Sender: FDA-Public Use
  Company Number: DE-ACCORD-232513

PATIENT
  Age: 69 Year
  Sex: Female
  Weight: 49 kg

DRUGS (15)
  1. ACETYLCYSTEINE. [Concomitant]
     Active Substance: ACETYLCYSTEINE
     Dosage: 600 MG, 1?0?0?0, EFFERVESCENT TABLETS
     Route: 048
  2. MACROGOL HEXAL PLUS ELECTROLYTESL [Concomitant]
     Dosage: 1?0?0?0
     Route: 048
  3. MORPHINE MERCK 2% [Concomitant]
     Dosage: AS REQUIRED 4, DROPS
     Route: 048
  4. HEPARIN?FRACTION [Concomitant]
     Active Substance: HEPARIN SODIUM
     Dosage: 0?0?1?0, PRE?FILLED SYRINGES
     Route: 058
  5. PANTOPRAZOLE [Concomitant]
     Active Substance: PANTOPRAZOLE
     Dosage: 40 MG, 1?0?0?0, TABLET
     Route: 048
  6. TAVOR [Concomitant]
     Dosage: 1.0MG EXPIDET?AS REQUIRED, ORODISPERSIBLE TABLETS
     Route: 048
  7. CARBOPLATIN. [Suspect]
     Active Substance: CARBOPLATIN
     Indication: PRODUCT USED FOR UNKNOWN INDICATION
  8. SODIUM PICOSULFATE [Concomitant]
     Active Substance: SODIUM PICOSULFATE
     Dosage: 7.5MG / ML PICO?7?0?0?0, TROPFEN
     Route: 048
  9. MAALOXAN [Concomitant]
     Active Substance: ALUMINUM HYDROXIDE\MAGNESIUM HYDROXIDE
     Dosage: 25MVAL SACHET?AS REQUIRED
     Route: 048
  10. GEMCITABINE/GEMCITABINE HYDROCHLORIDE [Suspect]
     Active Substance: GEMCITABINE\GEMCITABINE HYDROCHLORIDE
     Indication: PRODUCT USED FOR UNKNOWN INDICATION
  11. CANDESARTAN. [Concomitant]
     Active Substance: CANDESARTAN
     Dosage: 4 MG, 1?0?0?0, TABLET
     Route: 048
  12. METAMIZOLE SODIUM [Concomitant]
     Active Substance: METAMIZOLE SODIUM
     Dosage: 500 MG/ML, 30?30?30?30, DROPS
     Route: 048
  13. MORPHINE [Concomitant]
     Active Substance: MORPHINE
     Dosage: 10 MG, 1?0?1?0, PROLONGED?RELEASE TABLET
     Route: 048
  14. COLECALCIFEROL [Concomitant]
     Active Substance: CHOLECALCIFEROL
     Dosage: 20,000 IU, FRIDAY 1, CAPSULES
     Route: 048
  15. LEVOTHYROXINE. [Concomitant]
     Active Substance: LEVOTHYROXINE
     Dosage: 25 MICRO GRAM, 1?0?0?0, TABLET
     Route: 048

REACTIONS (3)
  - Chromaturia [Recovering/Resolving]
  - Flank pain [Recovering/Resolving]
  - Pyrexia [Recovering/Resolving]
